FAERS Safety Report 12180003 (Version 1)
Quarter: 2016Q1

REPORT INFORMATION
  Report Type: Spontaneous
  Country: US (occurrence: None)
  Receive Date: 20160314
  Receipt Date: 20160314
  Transmission Date: 20160526
  Serious: No
  Sender: FDA-Public Use
  Company Number: None

PATIENT
  Sex: Male

DRUGS (1)
  1. CAPECITABINE 500MG TEVA [Suspect]
     Active Substance: CAPECITABINE
     Dosage: 2000 MG TWICE A DAY MONDAY ORALLY
     Route: 048

REACTIONS (3)
  - Oesophageal pain [None]
  - Vomiting [None]
  - Diarrhoea [None]
